FAERS Safety Report 24569487 (Version 1)
Quarter: 2024Q4

REPORT INFORMATION
  Report Type: Report from Study
  Country: US (occurrence: US)
  Receive Date: 20241031
  Receipt Date: 20241031
  Transmission Date: 20250114
  Serious: Yes (Other)
  Sender: ABBVIE
  Company Number: US-ABBVIE-5982092

PATIENT
  Age: 53 Year
  Sex: Female

DRUGS (5)
  1. RINVOQ [Suspect]
     Active Substance: UPADACITINIB
     Indication: Rheumatoid arthritis
     Dosage: FORM STRENGTH: 15 MG
     Route: 048
     Dates: start: 202409
  2. GABAPENTIN [Concomitant]
     Active Substance: GABAPENTIN
     Indication: Product used for unknown indication
  3. GEMTESA [Concomitant]
     Active Substance: VIBEGRON
     Indication: Product used for unknown indication
  4. FOLIC ACID [Concomitant]
     Active Substance: FOLIC ACID
     Indication: Product used for unknown indication
  5. RASUVO [Suspect]
     Active Substance: METHOTREXATE SODIUM
     Indication: Product used for unknown indication
     Dosage: FORM STRENGTH:0.3 ML, RASUVO AUTO INJ (0.3ML)
     Route: 058

REACTIONS (8)
  - Spinal compression fracture [Not Recovered/Not Resolved]
  - Feeling abnormal [Unknown]
  - Dyspepsia [Not Recovered/Not Resolved]
  - Unevaluable event [Unknown]
  - Brain fog [Unknown]
  - Nausea [Unknown]
  - Influenza like illness [Unknown]
  - Headache [Unknown]

NARRATIVE: CASE EVENT DATE: 20240101
